FAERS Safety Report 13920125 (Version 1)
Quarter: 2017Q3

REPORT INFORMATION
  Report Type: Spontaneous
  Country: US (occurrence: US)
  Receive Date: 20170830
  Receipt Date: 20170830
  Transmission Date: 20171127
  Serious: No
  Sender: FDA-Public Use
  Company Number: US-BECTON DICKINSON-PI-05123

PATIENT

DRUGS (2)
  1. SEE ^CONCOMITANT^ HISTORY TYPE IN MEDICAL HISTORY [Concomitant]
  2. CHLORAPREP SINGLE SWABSTICK [Suspect]
     Active Substance: CHLORHEXIDINE GLUCONATE\ISOPROPYL ALCOHOL
     Indication: RASH MACULO-PAPULAR
     Dosage: 0 ML, ONCE
     Route: 061
     Dates: start: 20100701, end: 20100701

REACTIONS (4)
  - Rash maculo-papular [Unknown]
  - Erythema [Unknown]
  - Application site rash [None]
  - Application site erythema [None]

NARRATIVE: CASE EVENT DATE: 20100701
